FAERS Safety Report 6120509-2 (Version None)
Quarter: 2009Q1

REPORT INFORMATION
  Report Type: 
  Country: None (occurrence: None)
  Receive Date: 20090317
  Receipt Date: 20090309
  Transmission Date: 20090719
  Serious: Yes (Hospitalization)
  Sender: FDA-Public Use
  Company Number: FR-JNJFOC-20090302046

PATIENT
  Sex: Female

DRUGS (3)
  1. ARESTAL [Suspect]
     Indication: DIARRHOEA
     Route: 048
  2. FLAGYL [Suspect]
     Indication: DIARRHOEA
     Route: 048
  3. DEBRIDAT [Suspect]
     Indication: DIARRHOEA
     Route: 048

REACTIONS (2)
  - ACUTE GENERALISED EXANTHEMATOUS PUSTULOSIS [None]
  - PYREXIA [None]
